FAERS Safety Report 5639741-7 (Version None)
Quarter: 2008Q1

REPORT INFORMATION
  Report Type: 
  Country: None (occurrence: None)
  Receive Date: 20080222
  Receipt Date: 20080208
  Transmission Date: 20080703
  Serious: Yes (Other)
  Sender: FDA-Public Use
  Company Number: 022857

PATIENT
  Sex: Female

DRUGS (1)
  1. CLARAVIS [Suspect]
     Dosage: 20 MG, QD, ORAL
     Route: 048
     Dates: start: 20071127

REACTIONS (3)
  - ABORTION INDUCED [None]
  - DRUG EXPOSURE DURING PREGNANCY [None]
  - UNINTENDED PREGNANCY [None]
